FAERS Safety Report 5215459-X (Version None)
Quarter: 2007Q1

REPORT INFORMATION
  Report Type: 
  Country: None (occurrence: None)
  Receive Date: 20070119
  Receipt Date: 20070119
  Transmission Date: 20070707
  Serious: Yes (Other)
  Sender: FDA-Public Use
  Company Number: None

PATIENT
  Age: 50 Year
  Sex: Female
  Weight: 50.3 kg

DRUGS (2)
  1. OMNIPAQUE 350 [Suspect]
     Indication: BACK PAIN
     Dosage: 350 ONE TIME IV
     Route: 042
     Dates: start: 20061224, end: 20061224
  2. OMNIPAQUE 350 [Suspect]
     Indication: INJURY
     Dosage: 350 ONE TIME IV
     Route: 042
     Dates: start: 20061224, end: 20061224

REACTIONS (1)
  - URTICARIA [None]
